FAERS Safety Report 18955680 (Version 23)
Quarter: 2025Q3

REPORT INFORMATION
  Report Type: Spontaneous
  Country: IN (occurrence: IN)
  Receive Date: 20210301
  Receipt Date: 20250714
  Transmission Date: 20251021
  Serious: Yes (Disabling, Other)
  Sender: PFIZER
  Company Number: IN-PFIZER INC-2021185884

PATIENT
  Age: 82 Year
  Sex: Female
  Weight: 57 kg

DRUGS (13)
  1. PALBOCICLIB [Suspect]
     Active Substance: PALBOCICLIB
     Indication: Breast cancer metastatic
     Dosage: 100 MG, 1X/DAY
     Route: 048
     Dates: start: 20210112
  2. PALBOCICLIB [Suspect]
     Active Substance: PALBOCICLIB
     Dosage: 125 MG, 1X/DAY
     Route: 048
     Dates: start: 20210116
  3. PALBOCICLIB [Suspect]
     Active Substance: PALBOCICLIB
     Dosage: 125 MG, 1X/DAY
     Route: 048
  4. PALBOCICLIB [Suspect]
     Active Substance: PALBOCICLIB
  5. PALBOCICLIB [Suspect]
     Active Substance: PALBOCICLIB
     Dosage: 75 MG, 1X/DAY
     Route: 048
  6. PALBOCICLIB [Suspect]
     Active Substance: PALBOCICLIB
     Dosage: 125 MG, 1X/DAY
     Route: 048
  7. LETROZOLE [Concomitant]
     Active Substance: LETROZOLE
     Dosage: 2.5 MG, 1X/DAY
     Dates: start: 20210114
  8. SHELCAL CT [Concomitant]
  9. DENOSUMAB [Concomitant]
     Active Substance: DENOSUMAB
     Route: 058
     Dates: start: 20210114
  10. DENOSUMAB [Concomitant]
     Active Substance: DENOSUMAB
     Route: 058
  11. CALCIUM CARBONATE\CHOLECALCIFEROL [Concomitant]
     Active Substance: CALCIUM CARBONATE\CHOLECALCIFEROL
     Dosage: 500 MG, 1X/DAY
     Dates: start: 20210114
  12. MECMAXOL [Concomitant]
     Dosage: UNK, 1X/DAY
  13. NEUKINE [Concomitant]
     Route: 058

REACTIONS (25)
  - Haemorrhage [Recovering/Resolving]
  - Eye operation [Unknown]
  - Metastases to bone [Unknown]
  - Weight increased [Unknown]
  - Ulcer [Not Recovered/Not Resolved]
  - Cough [Recovering/Resolving]
  - Asthenia [Not Recovered/Not Resolved]
  - Dyspnoea [Recovering/Resolving]
  - Hypoacusis [Unknown]
  - Neutrophil count decreased [Unknown]
  - White blood cell count decreased [Unknown]
  - Pyrexia [Not Recovered/Not Resolved]
  - Alopecia [Not Recovered/Not Resolved]
  - Decreased appetite [Not Recovered/Not Resolved]
  - Flatulence [Not Recovered/Not Resolved]
  - Blood pressure diastolic decreased [Recovered/Resolved]
  - Haemoglobin decreased [Unknown]
  - Neutrophil percentage decreased [Unknown]
  - Upper respiratory tract infection [Unknown]
  - Gastrooesophageal reflux disease [Unknown]
  - Aggression [Unknown]
  - Blood pressure increased [Recovered/Resolved]
  - Respiratory rate increased [Unknown]
  - Weight decreased [Unknown]
  - Pulmonary mass [Unknown]

NARRATIVE: CASE EVENT DATE: 20210101
